FAERS Safety Report 7307825-3 (Version None)
Quarter: 2011Q1

REPORT INFORMATION
  Report Type: 
  Country: None (occurrence: None)
  Receive Date: 20110223
  Receipt Date: 20110211
  Transmission Date: 20110831
  Serious: Yes (Hospitalization)
  Sender: FDA-Public Use
  Company Number: MX-ELI_LILLY_AND_COMPANY-MX201102003493

PATIENT
  Age: 58 Year
  Sex: Female

DRUGS (2)
  1. PERPHENAZINE [Concomitant]
     Indication: ANXIETY
  2. HUMALOG MIX 75/25 [Suspect]
     Route: 058
     Dates: start: 20090101

REACTIONS (4)
  - IMPAIRED HEALING [None]
  - BLOOD PRESSURE ABNORMAL [None]
  - BLOOD GLUCOSE ABNORMAL [None]
  - LOCALISED INFECTION [None]
